FAERS Safety Report 4326111-7 (Version None)
Quarter: 2004Q1

REPORT INFORMATION
  Report Type: 
  Country: None (occurrence: None)
  Receive Date: 20040324
  Receipt Date: 20040316
  Transmission Date: 20041129
  Serious: Yes (Other)
  Sender: FDA-Public Use
  Company Number: 2004-02-0107

PATIENT
  Age: 39 Year
  Sex: Male
  Weight: 60 kg

DRUGS (4)
  1. INTRON A [Suspect]
     Indication: HEPATITIS C
     Dosage: 10 MU QD-TIW INTRAMUSCULAR
     Route: 030
     Dates: start: 20021007, end: 20021012
  2. INTRON A [Suspect]
     Indication: HEPATITIS C
     Dosage: 10 MU QD-TIW INTRAMUSCULAR
     Route: 030
     Dates: start: 20021014, end: 20021019
  3. INTRON A [Suspect]
     Indication: HEPATITIS C
     Dosage: 10 MU QD-TIW INTRAMUSCULAR
     Route: 030
     Dates: start: 20021007, end: 20021218
  4. INTRON A [Suspect]
     Indication: HEPATITIS C
     Dosage: 10 MU QD-TIW INTRAMUSCULAR
     Route: 030
     Dates: start: 20021021, end: 20021218

REACTIONS (4)
  - DIABETES MELLITUS INADEQUATE CONTROL [None]
  - GLYCOSYLATED HAEMOGLOBIN INCREASED [None]
  - RETINOPATHY [None]
  - VITREOUS HAEMORRHAGE [None]
